FAERS Safety Report 15305172 (Version 2)
Quarter: 2019Q1

REPORT INFORMATION
  Report Type: Report from Study
  Country: US (occurrence: US)
  Receive Date: 20180822
  Receipt Date: 20190111
  Transmission Date: 20190417
  Serious: No
  Sender: FDA-Public Use
  Company Number: US-AMGEN-USASL2018115108

PATIENT
  Age: 64 Year
  Sex: Male

DRUGS (2)
  1. ENBREL [Suspect]
     Active Substance: ETANERCEPT
     Dosage: 50 MG, QWK
     Route: 065
  2. ENBREL [Suspect]
     Active Substance: ETANERCEPT
     Indication: RHEUMATOID ARTHRITIS
     Dosage: 50 MG, QWK
     Route: 065

REACTIONS (8)
  - Rhinorrhoea [Unknown]
  - Hypoaesthesia [Unknown]
  - Cough [Unknown]
  - Chest pain [Unknown]
  - Sneezing [Unknown]
  - Oropharyngeal pain [Unknown]
  - Hypersensitivity [Unknown]
  - Paraesthesia [Unknown]
